FAERS Safety Report 14221657 (Version 1)
Quarter: 2017Q4

REPORT INFORMATION
  Report Type: Spontaneous
  Country: US (occurrence: US)
  Receive Date: 20171123
  Receipt Date: 20171123
  Transmission Date: 20180321
  Serious: No
  Sender: FDA-Public Use
  Company Number: US-ASTRAZENECA-2017SF17312

PATIENT

DRUGS (1)
  1. TAGRISSO [Suspect]
     Active Substance: OSIMERTINIB
     Indication: METASTASES TO MENINGES
     Route: 048

REACTIONS (4)
  - Urticaria [Unknown]
  - Lip swelling [Unknown]
  - Swelling face [Unknown]
  - Drug hypersensitivity [Unknown]
